FAERS Safety Report 24967986 (Version 1)
Quarter: 2025Q1

REPORT INFORMATION
  Report Type: Spontaneous
  Country: DE (occurrence: DE)
  Receive Date: 20250214
  Receipt Date: 20250214
  Transmission Date: 20250409
  Serious: Yes (Hospitalization)
  Sender: ROCHE
  Company Number: None

PATIENT
  Age: 82 Year
  Sex: Female
  Weight: 72 kg

DRUGS (1)
  1. ENTRECTINIB [Suspect]
     Active Substance: ENTRECTINIB
     Indication: Bronchial carcinoma
     Dosage: LAST DOSE ON 28-JAN-2025
     Route: 048
     Dates: start: 20241219

REACTIONS (3)
  - Delirium [Unknown]
  - Renal failure [Unknown]
  - Aggression [Unknown]

NARRATIVE: CASE EVENT DATE: 20250101
